FAERS Safety Report 23191829 (Version 4)
Quarter: 2024Q1

REPORT INFORMATION
  Report Type: Spontaneous
  Country: US (occurrence: US)
  Receive Date: 20231116
  Receipt Date: 20240112
  Transmission Date: 20240410
  Serious: No
  Sender: FDA-Public Use
  Company Number: US-OPELLA-2023OHG013696

PATIENT

DRUGS (2)
  1. ICY HOT [Suspect]
     Active Substance: MENTHOL\METHYL SALICYLATE
     Indication: Product used for unknown indication
     Dosage: DOSAGE STRENGTH: 11,68 G/73 ML
     Route: 065
  2. ICY HOT WITH LIDOCAINE PAIN RELIEVING [Suspect]
     Active Substance: LIDOCAINE\MENTHOL
     Route: 065

REACTIONS (2)
  - Drug ineffective [Unknown]
  - No adverse event [Unknown]
